FAERS Safety Report 10297433 (Version 4)
Quarter: 2014Q3

REPORT INFORMATION
  Report Type: Report from Study
  Country: ZW (occurrence: ZW)
  Receive Date: 20140711
  Receipt Date: 20140801
  Transmission Date: 20150326
  Serious: Yes (Death, Life-Threatening, Hospitalization)
  Sender: FDA-Public Use
  Company Number: ZW-009507513-1403USA010627

PATIENT
  Age: 37 Year
  Sex: Male

DRUGS (11)
  1. RALTEGRAVIR POTASSIUM [Suspect]
     Active Substance: RALTEGRAVIR POTASSIUM
     Indication: HIV INFECTION
     Dosage: UNK
     Route: 048
     Dates: start: 20140305, end: 20140328
  2. EMTRICITABINE [Suspect]
     Active Substance: EMTRICITABINE
     Indication: HIV INFECTION
  3. FLUCONAZOLE. [Concomitant]
     Active Substance: FLUCONAZOLE
     Dosage: UNK
     Dates: start: 20140224, end: 20140328
  4. PYRIDOXINE [Concomitant]
     Active Substance: PYRIDOXINE
     Dosage: UNK
     Dates: start: 20140305, end: 20140328
  5. ALBENDAZOLE [Concomitant]
     Active Substance: ALBENDAZOLE
     Dosage: UNK
     Dates: start: 20140305, end: 20140305
  6. EFAVIRENZ [Suspect]
     Active Substance: EFAVIRENZ
     Indication: HIV INFECTION
     Dosage: UNK
     Route: 048
     Dates: start: 20140305, end: 20140328
  7. ISONIAZID. [Concomitant]
     Active Substance: ISONIAZID
     Dosage: UNK
     Dates: start: 20140305, end: 20140328
  8. TENOFOVIR [Suspect]
     Active Substance: TENOFOVIR
     Indication: HIV INFECTION
  9. SULFAMETHOXAZOLE (+) TRIMETHOPRIM [Concomitant]
     Active Substance: SULFAMETHOXAZOLE\TRIMETHOPRIM
     Dosage: UNK
     Dates: start: 20140218, end: 20140328
  10. ERYTHROMYCIN. [Concomitant]
     Active Substance: ERYTHROMYCIN
     Dosage: UNK
     Dates: start: 20140303, end: 20140309
  11. AZITHROMYCIN [Concomitant]
     Active Substance: AZITHROMYCIN ANHYDROUS
     Dosage: UNK
     Dates: start: 20140305, end: 20140309

REACTIONS (3)
  - Meningitis tuberculous [Not Recovered/Not Resolved]
  - Confusional state [Fatal]
  - Meningitis cryptococcal [Fatal]

NARRATIVE: CASE EVENT DATE: 20140313
